FAERS Safety Report 22361386 (Version 4)
Quarter: 2024Q2

REPORT INFORMATION
  Report Type: Spontaneous
  Country: US (occurrence: US)
  Receive Date: 20230524
  Receipt Date: 20240613
  Transmission Date: 20240716
  Serious: Yes (Other)
  Sender: FDA-Public Use
  Company Number: US-PFIZER INC-202300197457

PATIENT
  Sex: Female

DRUGS (2)
  1. NARDIL [Suspect]
     Active Substance: PHENELZINE SULFATE
     Dosage: 3 DF, 1X/DAY; TAKING ALL 3 PILLS IN THE EVENING ALL TOGETHER
     Dates: start: 1982
  2. KLONOPIN [Concomitant]
     Active Substance: CLONAZEPAM
     Dosage: UNK

REACTIONS (9)
  - Nephrolithiasis [Unknown]
  - Uterine leiomyoma [Unknown]
  - Tooth disorder [Unknown]
  - Cataract [Unknown]
  - Anxiety [Unknown]
  - Hypertension [Unknown]
  - Head discomfort [Unknown]
  - Uterine polyp [Unknown]
  - Inappropriate schedule of product administration [Unknown]
